FAERS Safety Report 5911090-9 (Version None)
Quarter: 2008Q4

REPORT INFORMATION
  Report Type: 
  Country: None (occurrence: None)
  Receive Date: 20081007
  Receipt Date: 20071112
  Transmission Date: 20090506
  Serious: No
  Sender: FDA-Public Use
  Company Number: US-BRISTOL-MYERS SQUIBB COMPANY-13979083

PATIENT
  Age: 50 Year
  Sex: Female
  Weight: 63 kg

DRUGS (5)
  1. AVAPRO [Suspect]
     Indication: TYPE 1 DIABETES MELLITUS
     Route: 048
  2. CRESTOR [Concomitant]
  3. PREDNISONE [Concomitant]
  4. FLUDROCORTISONE ACETATE [Concomitant]
  5. ZOLOFT [Concomitant]

REACTIONS (7)
  - BRONCHITIS [None]
  - DYSPHONIA [None]
  - OROPHARYNGEAL PAIN [None]
  - SINUSITIS [None]
  - SWELLING [None]
  - SWELLING FACE [None]
  - WEIGHT INCREASED [None]
